FAERS Safety Report 5621131-4 (Version None)
Quarter: 2008Q1

REPORT INFORMATION
  Report Type: 
  Country: None (occurrence: None)
  Receive Date: 20080114
  Receipt Date: 20070208
  Transmission Date: 20080703
  Serious: Yes (Hospitalization)
  Sender: FDA-Public Use
  Company Number: A03200701177

PATIENT
  Age: 77 Year
  Sex: Female

DRUGS (4)
  1. PLAVIX [Suspect]
     Indication: CEREBROVASCULAR ACCIDENT
     Dosage: 75 MG QD - ORAL
     Route: 048
     Dates: start: 20070101, end: 20070201
  2. ACETYLSALICYLIC ACID SRT [Concomitant]
  3. CALCIUM [Concomitant]
  4. VITAMINS [Concomitant]

REACTIONS (2)
  - HEADACHE [None]
  - HYPERTENSION [None]
